FAERS Safety Report 5550383-4 (Version None)
Quarter: 2007Q4

REPORT INFORMATION
  Report Type: 
  Country: None (occurrence: None)
  Receive Date: 20071212
  Receipt Date: 20070430
  Transmission Date: 20080405
  Serious: No
  Sender: FDA-Public Use
  Company Number: US-AMGEN-KDL222574

PATIENT
  Sex: Female

DRUGS (2)
  1. ENBREL [Suspect]
     Indication: PSORIASIS
     Route: 058
     Dates: start: 20060829
  2. CYCLOSPORINE [Concomitant]
     Dates: start: 20070426

REACTIONS (2)
  - PSORIASIS [None]
  - TONSILLITIS [None]
